FAERS Safety Report 6188237-5 (Version None)
Quarter: 2009Q2

REPORT INFORMATION
  Report Type: 
  Country: None (occurrence: None)
  Receive Date: 20090513
  Receipt Date: 20090504
  Transmission Date: 20091009
  Serious: Yes (Hospitalization)
  Sender: FDA-Public Use
  Company Number: US-BIOGENIDEC-2009BI013706

PATIENT
  Age: 53 Year
  Sex: Female

DRUGS (2)
  1. TYSABRI [Suspect]
     Indication: MULTIPLE SCLEROSIS
     Route: 042
     Dates: start: 20050203, end: 20050201
  2. TYSABRI [Suspect]
     Route: 042
     Dates: start: 20061107

REACTIONS (3)
  - FALL [None]
  - HIP FRACTURE [None]
  - POST PROCEDURAL INFECTION [None]
